FAERS Safety Report 6720008-0 (Version None)
Quarter: 2010Q2

REPORT INFORMATION
  Report Type: 
  Country: None (occurrence: None)
  Receive Date: 20100511
  Receipt Date: 20100503
  Transmission Date: 20101027
  Serious: Yes (Other)
  Sender: FDA-Public Use
  Company Number: BR-TEVA-233955USA

PATIENT
  Sex: Female

DRUGS (1)
  1. MIRCETTE TABLET 0.15/0.02MG [Suspect]
     Indication: CONTRACEPTION
     Dosage: 150MCG/10 MCG
     Route: 048
     Dates: start: 20090101

REACTIONS (1)
  - HYPERTHYROIDISM [None]
